FAERS Safety Report 9091874 (Version 1)
Quarter: 2013Q1

REPORT INFORMATION
  Report Type: Report from Study
  Country: CA (occurrence: CA)
  Receive Date: 20130201
  Receipt Date: 20130201
  Transmission Date: 20140127
  Serious: Yes (Other)
  Sender: FDA-Public Use
  Company Number: CA-JNJFOC-20130112553

PATIENT
  Sex: Female
  Weight: 111 kg

DRUGS (8)
  1. REMICADE [Suspect]
     Indication: ANKYLOSING SPONDYLITIS
     Route: 042
     Dates: start: 20110106
  2. REMICADE [Suspect]
     Indication: ANKYLOSING SPONDYLITIS
     Route: 042
     Dates: start: 20130121
  3. TYLENOL [Concomitant]
     Indication: PREMEDICATION
     Route: 065
  4. REACTINE [Concomitant]
     Indication: PREMEDICATION
     Route: 065
  5. PLAQUENIL [Concomitant]
     Route: 065
  6. RABEPRAZOLE [Concomitant]
     Route: 065
  7. ACLASTA [Concomitant]
     Route: 042
  8. NAPROXEN [Concomitant]
     Dosage: PRN
     Route: 065

REACTIONS (2)
  - Gingival recession [Recovering/Resolving]
  - Adverse event [Unknown]
